FAERS Safety Report 6148033-1 (Version None)
Quarter: 2009Q2

REPORT INFORMATION
  Report Type: 
  Country: None (occurrence: None)
  Receive Date: 20090408
  Receipt Date: 20090226
  Transmission Date: 20091009
  Serious: No
  Sender: FDA-Public Use
  Company Number: US-BAYER-200914809NA

PATIENT
  Age: 27 Year
  Sex: Female
  Weight: 73 kg

DRUGS (2)
  1. MIRENA [Suspect]
     Indication: MENSTRUATION IRREGULAR
     Dosage: CONTINUOUS
     Route: 015
     Dates: start: 20081230
  2. SYNTHROID [Concomitant]

REACTIONS (1)
  - RASH GENERALISED [None]
